FAERS Safety Report 15041248 (Version 1)
Quarter: 2018Q2

REPORT INFORMATION
  Report Type: Spontaneous
  Country: FR (occurrence: FR)
  Receive Date: 20180621
  Receipt Date: 20180621
  Transmission Date: 20180711
  Serious: Yes (Hospitalization)
  Sender: FDA-Public Use
  Company Number: FR-SUN PHARMACEUTICAL INDUSTRIES LTD-2018RR-176230

PATIENT
  Age: 41 Year
  Sex: Male

DRUGS (3)
  1. PARACETAMOL [Suspect]
     Active Substance: ACETAMINOPHEN
     Indication: POISONING DELIBERATE
     Dosage: NON RENSEIGNEE
     Route: 065
     Dates: start: 20171007, end: 20171007
  2. DATURA (FEUILLE DE) [Suspect]
     Active Substance: DATURA STRAMONIUM LEAF
     Indication: POISONING
     Dosage: NON RENSEIGNEE
     Route: 065
     Dates: start: 20171007, end: 20171007
  3. CODEINE [Suspect]
     Active Substance: CODEINE
     Indication: TOXICITY TO VARIOUS AGENTS
     Dosage: NON RENSEIGNEE
     Route: 065
     Dates: start: 20171007, end: 20171007

REACTIONS (5)
  - Mydriasis [Recovered/Resolved]
  - Depressed level of consciousness [Recovered/Resolved]
  - Psychomotor hyperactivity [Recovered/Resolved]
  - Anticholinergic syndrome [Recovered/Resolved]
  - Analgesic drug level increased [Recovered/Resolved]

NARRATIVE: CASE EVENT DATE: 20171007
